FAERS Safety Report 5590196-0 (Version None)
Quarter: 2008Q1

REPORT INFORMATION
  Report Type: 
  Country: None (occurrence: None)
  Receive Date: 20080114
  Receipt Date: 20080110
  Transmission Date: 20080703
  Serious: Yes (Death)
  Sender: FDA-Public Use
  Company Number: US-ASTRAZENECA-2008AC00148

PATIENT
  Age: 49 Year
  Sex: Male

DRUGS (6)
  1. LISINOPRIL [Suspect]
     Route: 048
  2. METHADONE HCL [Suspect]
     Route: 048
  3. ACETAMINOPHEN [Suspect]
     Route: 048
  4. CITALOPRAM [Suspect]
     Route: 048
  5. QUININE [Suspect]
     Route: 048
  6. UNKNOWN DRUG [Suspect]
     Route: 048

REACTIONS (2)
  - CARDIO-RESPIRATORY ARREST [None]
  - DEATH [None]
